APPROVED DRUG PRODUCT: MEPROBAMATE
Active Ingredient: MEPROBAMATE
Strength: 200MG
Dosage Form/Route: TABLET;ORAL
Application: A200998 | Product #001
Applicant: TARO PHARMACEUTICAL INDUSTRIES LTD
Approved: May 23, 2011 | RLD: No | RS: No | Type: DISCN